FAERS Safety Report 4463728-3 (Version None)
Quarter: 2004Q4

REPORT INFORMATION
  Report Type: 
  Country: None (occurrence: None)
  Receive Date: 20041001
  Receipt Date: 20000606
  Transmission Date: 20050328
  Serious: Yes (Hospitalization)
  Sender: FDA-Public Use
  Company Number: 10409357

PATIENT
  Age: 23 Year
  Sex: Female

DRUGS (4)
  1. ATAZANAVIR [Suspect]
     Indication: HIV INFECTION
     Route: 048
     Dates: start: 20000407, end: 20001122
  2. ZERIT [Suspect]
     Indication: HIV INFECTION
     Route: 048
     Dates: start: 20000407, end: 20001122
  3. LAMIVUDINE [Suspect]
     Indication: HIV INFECTION
     Route: 048
     Dates: start: 20000407, end: 20001122
  4. FERROUS SULFATE TAB [Concomitant]
     Dates: start: 20001019

REACTIONS (12)
  - BREECH PRESENTATION [None]
  - CAESAREAN SECTION [None]
  - DRUG EXPOSURE DURING PREGNANCY [None]
  - FOETAL GROWTH RETARDATION [None]
  - HAEMOGLOBIN DECREASED [None]
  - INFECTION [None]
  - NORMAL NEWBORN [None]
  - PLEURITIC PAIN [None]
  - PREGNANCY [None]
  - PREMATURE LABOUR [None]
  - PULMONARY EMBOLISM [None]
  - URINARY TRACT INFECTION [None]
